FAERS Safety Report 7417389-1 (Version None)
Quarter: 2011Q2

REPORT INFORMATION
  Report Type: 
  Country: None (occurrence: None)
  Receive Date: 20110415
  Receipt Date: 20110405
  Transmission Date: 20111010
  Serious: Yes (Hospitalization)
  Sender: FDA-Public Use
  Company Number: FR-B.I. PHARMACEUTICALS,INC./RIDGEFIELD-2011-FF-00346FF

PATIENT
  Sex: Male

DRUGS (7)
  1. SIFROL LP [Suspect]
     Indication: RESTLESS LEGS SYNDROME
     Dosage: 1.05 MG
     Route: 048
     Dates: start: 20100801
  2. NEXIUM [Suspect]
     Dosage: 40 MG
     Route: 048
     Dates: start: 20070101, end: 20110310
  3. NEXIUM [Suspect]
     Dosage: 20 MG
     Route: 048
     Dates: start: 20110310, end: 20110315
  4. NOCTRAN [Concomitant]
     Dates: end: 20110101
  5. TOPAAL [Concomitant]
     Dates: end: 20110101
  6. IBUPROFEN [Concomitant]
     Dates: end: 20110101
  7. ZALDIAR [Concomitant]
     Dates: end: 20110101

REACTIONS (2)
  - CYTOLYTIC HEPATITIS [None]
  - JAUNDICE [None]
